FAERS Safety Report 5702399-2 (Version None)
Quarter: 2008Q2

REPORT INFORMATION
  Report Type: 
  Country: None (occurrence: None)
  Receive Date: 20080411
  Receipt Date: 20080407
  Transmission Date: 20081010
  Serious: Yes (Disabling)
  Sender: FDA-Public Use
  Company Number: JP-ASTRAZENECA-2008AP01415

PATIENT
  Age: 14157 Day
  Sex: Male
  Weight: 130 kg

DRUGS (8)
  1. DIPRIVAN [Suspect]
     Indication: SEDATION
     Route: 042
     Dates: start: 20080110, end: 20080203
  2. HANP [Concomitant]
     Route: 041
     Dates: start: 20080110, end: 20080124
  3. MIDAZOLAM HCL [Concomitant]
     Route: 041
     Dates: start: 20080110, end: 20080201
  4. LASIX [Concomitant]
     Dosage: ONCE OR TWICE DAILY
     Route: 041
     Dates: start: 20080110
  5. TAKEPRON [Concomitant]
     Route: 048
     Dates: start: 20080111
  6. DIOVAN [Concomitant]
     Route: 048
     Dates: start: 20080111
  7. ARTIST [Concomitant]
     Route: 048
     Dates: start: 20080111
  8. ATELEC [Concomitant]
     Route: 048
     Dates: start: 20080111

REACTIONS (5)
  - ALTERED STATE OF CONSCIOUSNESS [None]
  - GLYCOSYLATED HAEMOGLOBIN INCREASED [None]
  - HAEMODIALYSIS [None]
  - HYPOREFLEXIA [None]
  - STAPHYLOCOCCAL SEPSIS [None]
